FAERS Safety Report 22767662 (Version 4)
Quarter: 2023Q4

REPORT INFORMATION
  Report Type: Report from Study
  Country: CN (occurrence: CN)
  Receive Date: 20230731
  Receipt Date: 20231213
  Transmission Date: 20240109
  Serious: Yes (Hospitalization)
  Sender: FDA-Public Use
  Company Number: CN-PFIZER INC-PV202300129472

PATIENT
  Age: 56 Year
  Sex: Male
  Weight: 60 kg

DRUGS (27)
  1. IRINOTECAN HYDROCHLORIDE [Suspect]
     Active Substance: IRINOTECAN HYDROCHLORIDE
     Indication: Pancreatic carcinoma
     Dosage: 135 MG/M2, TOTAL DOSE: 221 MG
     Route: 042
     Dates: start: 20220120, end: 20220120
  2. IRINOTECAN HYDROCHLORIDE [Suspect]
     Active Substance: IRINOTECAN HYDROCHLORIDE
     Dosage: 135 MG/M2, TOTAL DOSE: 224 MG
     Route: 042
     Dates: start: 20220510, end: 20220510
  3. OXALIPLATIN [Suspect]
     Active Substance: OXALIPLATIN
     Indication: Pancreatic carcinoma
     Dosage: 68 MG/M2, TOTAL DOSE: 106MG, INFUSION
     Route: 042
     Dates: start: 20220119, end: 20220119
  4. OXALIPLATIN [Suspect]
     Active Substance: OXALIPLATIN
     Dosage: 68 MG/M2, TOTAL DOSE: 113MG, INFUSION
     Route: 042
     Dates: start: 20220509, end: 20220509
  5. FLUOROURACIL [Suspect]
     Active Substance: FLUOROURACIL
     Indication: Pancreatic carcinoma
     Dosage: UNK, BOLUS INFUSION
     Route: 040
  6. FLUOROURACIL [Suspect]
     Active Substance: FLUOROURACIL
     Dosage: 2400 MG/M2, TOTAL DOSE: 3757 MG, CONTINUOUS INFUSION
     Route: 042
     Dates: start: 20220120, end: 20220120
  7. FLUOROURACIL [Suspect]
     Active Substance: FLUOROURACIL
     Dosage: 2400 MG/M2, TOTAL DOSE: 3984 MG, CONTINUOUS INFUSION
     Route: 042
     Dates: start: 20220512, end: 20220512
  8. INVESTIGATIONAL PRODUCT [Suspect]
     Active Substance: INVESTIGATIONAL PRODUCT
     Indication: Pancreatic carcinoma
     Dosage: UNK
     Route: 042
     Dates: start: 20220120, end: 20220120
  9. INVESTIGATIONAL PRODUCT [Suspect]
     Active Substance: INVESTIGATIONAL PRODUCT
     Dosage: UNK
     Route: 042
     Dates: start: 20220510, end: 20220510
  10. LEUCOVORIN [Concomitant]
     Active Substance: LEUCOVORIN\LEUCOVORIN CALCIUM
     Indication: Pancreatic carcinoma
     Dosage: 400 MG/M2, TOTAL DOSE: 626 MG, INFUSION
     Route: 042
     Dates: start: 20220119, end: 20220119
  11. LEUCOVORIN [Concomitant]
     Active Substance: LEUCOVORIN\LEUCOVORIN CALCIUM
     Dosage: 400 MG/M2, TOTAL DOSE 664 MG, INFUSION
     Route: 042
     Dates: start: 20220510, end: 20220510
  12. TIOPRONIN [Concomitant]
     Active Substance: TIOPRONIN
     Dosage: UNK
     Dates: start: 20220506, end: 20220508
  13. DEXAMETHASONE SODIUM PHOSPHATE [Concomitant]
     Active Substance: DEXAMETHASONE PHOSPHATE\DEXAMETHASONE SODIUM PHOSPHATE
     Dosage: UNK
     Dates: start: 20220506, end: 20220506
  14. DOLASETRON MESYLATE [Concomitant]
     Active Substance: DOLASETRON MESYLATE
     Dosage: UNK
     Dates: start: 20220506, end: 20220506
  15. RABEPRAZOLE SODIUM [Concomitant]
     Active Substance: RABEPRAZOLE SODIUM
     Dosage: UNK
     Dates: start: 20220506, end: 20220506
  16. INVERT SUGAR AND ELECTROLYTES [Concomitant]
     Dosage: UNK
     Dates: start: 20220506, end: 20230508
  17. GRANULOCYTE COLONY-STIMULATING FACTOR NOS [Concomitant]
     Active Substance: GRANULOCYTE COLONY-STIMULATING FACTOR NOS
     Dosage: FILGRASTIM
     Dates: start: 20220506, end: 20220506
  18. COMPOUND SODIUM CHLORIDE [CALCIUM CHLORIDE;POTASSIUM CHLORIDE;SODIUM C [Concomitant]
     Dosage: UNK
     Dates: start: 20220507, end: 20220508
  19. FAT SOLUBLE VITAMINS NOS [Concomitant]
     Dosage: UNK
     Dates: start: 20220507, end: 20220508
  20. RIBOFLAVIN 5^-PHOSPHATE SODIUM ANHYDROUS [Concomitant]
     Active Substance: RIBOFLAVIN 5^-PHOSPHATE SODIUM ANHYDROUS
     Dosage: UNK
     Dates: start: 20220507, end: 20220508
  21. ORNITHINE ASPARTATE [Concomitant]
     Active Substance: ORNITHINE ASPARTATE
     Dosage: UNK
     Dates: start: 20220507, end: 20220508
  22. COMPOUND AMINO ACID INJECTION (18AA-VII) [Concomitant]
     Dosage: UNK
     Dates: start: 20220507, end: 20220508
  23. COMPOSITE POTASSIUM HYDROGEN PHOSPHATE [Concomitant]
     Dosage: UNK
     Dates: start: 20220507, end: 20220508
  24. POTASSIUM CHLORIDE [Concomitant]
     Active Substance: POTASSIUM CHLORIDE
     Dosage: UNK
     Dates: start: 20220507, end: 20220508
  25. METHIONINE AND VITAMIN B1 [Concomitant]
     Dosage: UNK
     Dates: start: 20220507, end: 20220508
  26. MAGNESIUM ASPARTATE\POTASSIUM ASPARTATE [Concomitant]
     Active Substance: MAGNESIUM ASPARTATE\POTASSIUM ASPARTATE
     Dosage: UNK
     Dates: start: 20220507, end: 20220508
  27. GLUTATHIONE [Concomitant]
     Active Substance: GLUTATHIONE
     Dosage: UNK
     Dates: start: 20220507, end: 20220508

REACTIONS (3)
  - Platelet count decreased [Recovered/Resolved]
  - White blood cell count decreased [Recovered/Resolved]
  - Neutrophil count decreased [Recovered/Resolved]

NARRATIVE: CASE EVENT DATE: 20220520
